FAERS Safety Report 4463358-3 (Version None)
Quarter: 2004Q3

REPORT INFORMATION
  Report Type: 
  Country: None (occurrence: None)
  Receive Date: 20040928
  Receipt Date: 20040920
  Transmission Date: 20050211
  Serious: Yes (Death, Hospitalization)
  Sender: FDA-Public Use
  Company Number: 6010648

PATIENT
  Age: 77 Year
  Sex: Male

DRUGS (6)
  1. BISOPROLOL FUMARATE [Suspect]
     Indication: CARDIAC FAILURE CONGESTIVE
     Dosage: 1,25 MG  ORAL
     Route: 048
     Dates: start: 20040916
  2. ENALAPRIL MALEATE [Suspect]
     Indication: CARDIAC FAILURE CONGESTIVE
     Dosage: 20 MG  ORAL
     Route: 048
     Dates: start: 20040318
  3. FUROSEMIDE [Concomitant]
  4. POTASSIUM [Concomitant]
  5. ASPIRIN [Concomitant]
  6. ISOSORBIDE MONONITRATE [Concomitant]

REACTIONS (6)
  - BRAIN HYPOXIA [None]
  - CARDIAC ARREST [None]
  - LOSS OF CONSCIOUSNESS [None]
  - SUDDEN CARDIAC DEATH [None]
  - TORSADE DE POINTES [None]
  - VENTRICULAR FIBRILLATION [None]
